FAERS Safety Report 8954937 (Version 2)
Quarter: 2015Q4

REPORT INFORMATION
  Report Type: Spontaneous
  Country: US (occurrence: US)
  Receive Date: 20121210
  Receipt Date: 20151106
  Transmission Date: 20160305
  Serious: No
  Sender: FDA-Public Use
  Company Number: US-BAYER-2012-122283

PATIENT
  Age: 43 Year
  Sex: Female
  Weight: 90.7 kg

DRUGS (15)
  1. ULTRAM [Concomitant]
     Active Substance: TRAMADOL HYDROCHLORIDE
  2. BACLOFEN. [Concomitant]
     Active Substance: BACLOFEN
  3. ASPIRIN. [Concomitant]
     Active Substance: ASPIRIN
  4. CRANBERRY. [Concomitant]
     Active Substance: CRANBERRY
  5. CALCIUM-MAGNSEIUM WITH ZINC [Concomitant]
  6. MACRODANTIN [Concomitant]
     Active Substance: NITROFURANTOIN
  7. CHONDROITIN W/GLUCOSAMINE [Concomitant]
  8. WOMEN^S MULTI [Concomitant]
  9. BETASERON [Suspect]
     Active Substance: INTERFERON BETA-1B
     Indication: PRODUCT USED FOR UNKNOWN INDICATION
     Dosage: 0.25 ?G/ML, QOD
     Route: 058
     Dates: start: 1993
  10. CIPROFLOXACIN. [Concomitant]
     Active Substance: CIPROFLOXACIN
  11. DETROL LA [Concomitant]
     Active Substance: TOLTERODINE TARTRATE
  12. VITAMIN D [Concomitant]
     Active Substance: CHOLECALCIFEROL
  13. FISH OIL [Concomitant]
     Active Substance: FISH OIL
  14. HYDROCHLOROTHIAZID [Concomitant]
     Active Substance: HYDROCHLOROTHIAZIDE
  15. GARLIC. [Concomitant]
     Active Substance: GARLIC

REACTIONS (3)
  - Influenza like illness [None]
  - Injection site induration [Unknown]
  - Gait disturbance [None]

NARRATIVE: CASE EVENT DATE: 1993
